FAERS Safety Report 18739917 (Version 1)
Quarter: 2021Q1

REPORT INFORMATION
  Report Type: Spontaneous
  Country: US (occurrence: US)
  Receive Date: 20210113
  Receipt Date: 20210113
  Transmission Date: 20210419
  Serious: Yes (Disabling)
  Sender: FDA-Public Use
  Company Number: None

PATIENT
  Age: 83 Year
  Sex: Female
  Weight: 60.78 kg

DRUGS (4)
  1. PROLIA [Suspect]
     Active Substance: DENOSUMAB
     Indication: OSTEOPENIA
     Dosage: ?          OTHER FREQUENCY:2X^S PER YEAR;?
     Route: 058
     Dates: start: 201903, end: 202009
  2. CENTRUM SILVER [Concomitant]
     Active Substance: MINERALS\VITAMINS
  3. CALCIUM [Concomitant]
     Active Substance: CALCIUM
  4. PROLIA [Suspect]
     Active Substance: DENOSUMAB
     Indication: BONE DENSITY ABNORMAL
     Dosage: ?          OTHER FREQUENCY:2X^S PER YEAR;?
     Route: 058
     Dates: start: 201903, end: 202009

REACTIONS (5)
  - Pain in extremity [None]
  - Blood cholesterol increased [None]
  - Pain in jaw [None]
  - Myalgia [None]
  - Neck pain [None]
